FAERS Safety Report 5345703-X (Version None)
Quarter: 2007Q2

REPORT INFORMATION
  Report Type: 
  Country: None (occurrence: None)
  Receive Date: 20070605
  Receipt Date: 20070529
  Transmission Date: 20071010
  Serious: Yes (Hospitalization, Other)
  Sender: FDA-Public Use
  Company Number: PHRM2007FR01530

PATIENT
  Age: 76 Year
  Sex: Female

DRUGS (6)
  1. TRILEPTAL [Suspect]
     Dosage: 150MG + 300MG PER DAY
     Route: 048
     Dates: start: 20061215, end: 20070417
  2. COAPROVEL [Suspect]
     Indication: ESSENTIAL HYPERTENSION
     Route: 048
     Dates: start: 20070402, end: 20070417
  3. KEPPRA [Concomitant]
     Route: 048
  4. ASPEGIC 1000 [Concomitant]
     Route: 048
  5. FOSAMAX [Concomitant]
     Route: 048
  6. CACIT D3 [Concomitant]
     Route: 048

REACTIONS (6)
  - CONFUSIONAL STATE [None]
  - CONVULSION [None]
  - FLUID INTAKE RESTRICTION [None]
  - HYPONATRAEMIA [None]
  - HYPOTENSION [None]
  - PNEUMONIA ASPIRATION [None]
